FAERS Safety Report 9052536 (Version 2)
Quarter: 2013Q1

REPORT INFORMATION
  Report Type: Spontaneous
  Country: ES (occurrence: ES)
  Receive Date: 20130207
  Receipt Date: 20130211
  Transmission Date: 20140127
  Serious: Yes (Life-Threatening, Hospitalization, Other)
  Sender: FDA-Public Use
  Company Number: PHHY2013ES010497

PATIENT
  Age: 50 Year
  Sex: Male

DRUGS (8)
  1. TASIGNA [Suspect]
     Indication: CHRONIC MYELOID LEUKAEMIA
     Dosage: 400 MG, Q12H
     Route: 048
     Dates: start: 20120203, end: 20130104
  2. ADIRO [Concomitant]
  3. PANTOPRAZOLE [Concomitant]
  4. PLAVIX [Concomitant]
  5. BISOPROLOL [Concomitant]
  6. NORVAS [Concomitant]
  7. ATORVASTATIN [Concomitant]
  8. ELECOR [Concomitant]

REACTIONS (4)
  - Acute myocardial infarction [Recovered/Resolved]
  - Chest pain [Recovered/Resolved]
  - Supraventricular tachycardia [Recovered/Resolved]
  - Coronary artery disease [Unknown]
